FAERS Safety Report 16341481 (Version 1)
Quarter: 2019Q2

REPORT INFORMATION
  Report Type: Spontaneous
  Country: US (occurrence: US)
  Receive Date: 20190522
  Receipt Date: 20190522
  Transmission Date: 20190711
  Serious: Yes (Other)
  Sender: FDA-Public Use
  Company Number: PHHY2017US114594

PATIENT
  Age: 36 Year
  Sex: Female

DRUGS (9)
  1. SALINE [Suspect]
     Active Substance: SODIUM CHLORIDE
     Indication: HAEMORRHAGE
     Route: 065
  2. METHYLPREDNISOLONE. [Suspect]
     Active Substance: METHYLPREDNISOLONE
     Indication: ACUTE HAEMORRHAGIC LEUKOENCEPHALITIS
  3. MANNITOL. [Suspect]
     Active Substance: MANNITOL
     Indication: HAEMORRHAGE
     Route: 065
  4. HEPARIN [Suspect]
     Active Substance: HEPARIN SODIUM
     Indication: DEEP VEIN THROMBOSIS
     Dosage: 10000 U, BID
     Route: 058
  5. METHYLPREDNISOLONE. [Suspect]
     Active Substance: METHYLPREDNISOLONE
     Indication: IMMUNOSUPPRESSION
     Dosage: 1 G, QD
     Route: 042
  6. ASPIRIN. [Suspect]
     Active Substance: ASPIRIN
     Indication: PRODUCT USED FOR UNKNOWN INDICATION
     Route: 065
  7. SALINE [Suspect]
     Active Substance: SODIUM CHLORIDE
     Indication: OEDEMA
  8. ACYCLOVIR. [Suspect]
     Active Substance: ACYCLOVIR
     Indication: ENCEPHALITIS VIRAL
     Route: 065
  9. MANNITOL. [Suspect]
     Active Substance: MANNITOL
     Indication: OEDEMA

REACTIONS (2)
  - Drug ineffective [Unknown]
  - Maternal exposure during pregnancy [Unknown]
